FAERS Safety Report 11915562 (Version 1)
Quarter: 2016Q1

REPORT INFORMATION
  Report Type: Spontaneous
  Country: DE (occurrence: DE)
  Receive Date: 20160114
  Receipt Date: 20160114
  Transmission Date: 20160526
  Serious: Yes (Hospitalization)
  Sender: FDA-Public Use
  Company Number: DE-AMGEN-DEUSP2016001736

PATIENT
  Sex: Male

DRUGS (16)
  1. CYCLOPHOSPHAMIDE. [Concomitant]
     Active Substance: CYCLOPHOSPHAMIDE
     Indication: B-CELL LYMPHOMA
     Dosage: 1650 MG, ONCE PER CYCLE
     Route: 042
     Dates: start: 20151204
  2. VINCRISTINE [Concomitant]
     Active Substance: VINCRISTINE
     Indication: B-CELL LYMPHOMA
     Dosage: 2 MG, ONCE PER CYCLE
     Route: 042
     Dates: start: 20151204
  3. PREDNISOLONE. [Concomitant]
     Active Substance: PREDNISOLONE
     Indication: B-CELL LYMPHOMA
     Dosage: 100 MG, ) 6 TIMES PER CYCLE, ONCE IV
     Route: 042
     Dates: start: 20151124
  4. DOXORUBICINE                       /00330901/ [Concomitant]
     Active Substance: DOXORUBICIN
     Indication: B-CELL LYMPHOMA
     Dosage: 110 MG, ONCE PER CYCLE
     Route: 042
     Dates: start: 20151204
  5. COLECALCIFEROL [Concomitant]
     Active Substance: CHOLECALCIFEROL
     Indication: VITAMIN SUPPLEMENTATION
     Dosage: 20000 IU, 1 IN 2 WK
     Route: 048
     Dates: start: 20151118
  6. LEUCOVORIN                         /00566701/ [Concomitant]
     Active Substance: LEUCOVORIN
     Indication: B-CELL LYMPHOMA
     Dosage: 120 MG, 1 CYCLE FOR 2 DAYS
     Route: 065
     Dates: start: 20151127, end: 20151128
  7. CYCLOPHOSPHAMIDE. [Concomitant]
     Active Substance: CYCLOPHOSPHAMIDE
     Dosage: 1650 MG, ONCE PER CYCLE
     Route: 042
     Dates: start: 20151218, end: 20151218
  8. PREDNISOLONE. [Concomitant]
     Active Substance: PREDNISOLONE
     Dosage: 100 MG, 6 TIMES PER CYCLE, ONCE ORAL
     Route: 048
  9. ACICLOVIR [Concomitant]
     Active Substance: ACYCLOVIR
     Indication: PROPHYLAXIS
     Dosage: 400 MG, 4 IN 1 D
     Route: 048
     Dates: start: 201511
  10. PEGFILGRASTIM [Suspect]
     Active Substance: PEGFILGRASTIM
     Indication: B-CELL LYMPHOMA
     Dosage: 6 MG, DAY 4 OF EACH CYCLE
     Route: 058
     Dates: start: 20151221, end: 20151221
  11. METHOTREXATE [Concomitant]
     Active Substance: METHOTREXATE
     Indication: B-CELL LYMPHOMA
     Dosage: 3226 MG, 1 CYCLE FOR 2 DAYS
     Route: 042
     Dates: start: 20151126, end: 20151127
  12. CIPROFLOXACIN. [Concomitant]
     Active Substance: CIPROFLOXACIN
     Indication: PROPHYLAXIS
     Dosage: 500 MG, 2 IN 1 D
     Route: 048
     Dates: start: 201511
  13. RITUXIMAB [Concomitant]
     Active Substance: RITUXIMAB
     Indication: B-CELL LYMPHOMA
     Dosage: 810 MG, ONCE PER CYCLE
     Route: 042
     Dates: start: 20151124
  14. ALLOPURINOL. [Concomitant]
     Active Substance: ALLOPURINOL
     Indication: PROPHYLAXIS
     Dosage: 300 MG, 1 IN 1 D
     Route: 048
     Dates: start: 201511
  15. DOXORUBICINE                       /00330901/ [Concomitant]
     Active Substance: DOXORUBICIN
     Dosage: 110 MG, ONCE PER CYCLE
     Route: 042
     Dates: start: 20151218, end: 20151218
  16. PREDNISOLONE. [Concomitant]
     Active Substance: PREDNISOLONE
     Dosage: 100 MG, 6 TIMES PER CYCLE, ONCE ORAL
     Route: 042
     Dates: start: 20151217, end: 20151222

REACTIONS (1)
  - Subclavian vein thrombosis [Recovered/Resolved]

NARRATIVE: CASE EVENT DATE: 20151229
